FAERS Safety Report 9029319 (Version 3)
Quarter: 2013Q2

REPORT INFORMATION
  Report Type: Spontaneous
  Country: US (occurrence: US)
  Receive Date: 20130124
  Receipt Date: 20130409
  Transmission Date: 20140414
  Serious: Yes (Hospitalization, Other)
  Sender: FDA-Public Use
  Company Number: US-009507513-2009SP017682

PATIENT
  Sex: Female
  Weight: 101.15 kg

DRUGS (4)
  1. NUVARING [Suspect]
     Indication: CONTRACEPTION
     Dates: start: 20050125, end: 20050524
  2. TETRACYCLINE [Concomitant]
     Indication: ACNE
     Dosage: 1 DF, QD
     Dates: start: 2005
  3. DIOVAN HCT [Concomitant]
     Dosage: 160/25 MG
     Dates: start: 20050524
  4. WELLBUTRIN [Concomitant]
     Indication: PRODUCT USED FOR UNKNOWN INDICATION

REACTIONS (13)
  - Pulmonary hypertension [Unknown]
  - Acidosis [Unknown]
  - Pulmonary embolism [Recovered/Resolved with Sequelae]
  - Deep vein thrombosis [Not Recovered/Not Resolved]
  - Thrombophlebitis superficial [Unknown]
  - Hypertension [Unknown]
  - Sleep apnoea syndrome [Unknown]
  - Hepatic cyst [Unknown]
  - Hypersensitivity [Unknown]
  - Deep vein thrombosis [Recovered/Resolved]
  - Fatigue [Unknown]
  - Alopecia [Unknown]
  - Peripheral coldness [Unknown]
